FAERS Safety Report 5981837-4 (Version None)
Quarter: 2008Q4

REPORT INFORMATION
  Report Type: 
  Country: None (occurrence: None)
  Receive Date: 20081202
  Receipt Date: 20081118
  Transmission Date: 20090506
  Serious: Yes (Other)
  Sender: FDA-Public Use
  Company Number: 230924J08USA

PATIENT
  Age: 43 Year
  Sex: Male
  Weight: 69 kg

DRUGS (4)
  1. REBIF [Suspect]
     Indication: MULTIPLE SCLEROSIS
     Dosage: 44 MCG, 3 IN 1 WEEKS, SUBCUTANEOUS
     Route: 058
     Dates: start: 20050301
  2. NEXIUM [Concomitant]
  3. NEURONTIN [Concomitant]
  4. NORTRIPTYLINE HCL [Concomitant]

REACTIONS (3)
  - AUTOIMMUNE THYROIDITIS [None]
  - WEIGHT DECREASED [None]
  - WHITE BLOOD CELL COUNT DECREASED [None]
